FAERS Safety Report 10957066 (Version 1)
Quarter: 2015Q1

REPORT INFORMATION
  Report Type: Spontaneous
  Country: US (occurrence: US)
  Receive Date: 20150326
  Receipt Date: 20150326
  Transmission Date: 20150721
  Serious: Yes (Hospitalization)
  Sender: FDA-Public Use
  Company Number: US-PFIZER INC-2015099741

PATIENT
  Age: 86 Year
  Sex: Male
  Weight: 82.54 kg

DRUGS (2)
  1. ADVIL [Concomitant]
     Active Substance: IBUPROFEN
     Dosage: UNK
  2. SUTENT [Suspect]
     Active Substance: SUNITINIB MALATE
     Indication: NEOPLASM MALIGNANT
     Dosage: 12.5 MG, CYCLIC (TWICE A DAY)
     Route: 048

REACTIONS (2)
  - Haemorrhage [Unknown]
  - Macule [Unknown]

NARRATIVE: CASE EVENT DATE: 20150226
